FAERS Safety Report 13446843 (Version 1)
Quarter: 2017Q2

REPORT INFORMATION
  Report Type: Spontaneous
  Country: US (occurrence: US)
  Receive Date: 20170414
  Receipt Date: 20170414
  Transmission Date: 20170830
  Serious: Yes (Other)
  Sender: FDA-Public Use
  Company Number: None

PATIENT
  Age: 16 Year
  Sex: Female
  Weight: 66.6 kg

DRUGS (6)
  1. PITOCIN [Suspect]
     Active Substance: OXYTOCIN
     Indication: LABOUR INDUCTION
     Dosage: ?          OTHER FREQUENCY:INFUSION;?
     Route: 041
  2. NALBUPHINE [Concomitant]
     Active Substance: NALBUPHINE
  3. ONDANSETRON [Concomitant]
     Active Substance: ONDANSETRON
  4. TERBUTALINE [Concomitant]
     Active Substance: TERBUTALINE
  5. PITOCIN [Suspect]
     Active Substance: OXYTOCIN
     Indication: LABOUR INDUCTION
     Dosage: ?          OTHER FREQUENCY:INFUSION;?
     Route: 041
     Dates: start: 20170410, end: 20170410
  6. CITRIC ACID/SODIUM CITRATE [Concomitant]

REACTIONS (2)
  - Uterine hyperstimulation [None]
  - Exposure during pregnancy [None]

NARRATIVE: CASE EVENT DATE: 20170410
